FAERS Safety Report 6505860-6 (Version None)
Quarter: 2009Q4

REPORT INFORMATION
  Report Type: 
  Country: None (occurrence: None)
  Receive Date: 20091217
  Receipt Date: 20091217
  Transmission Date: 20100525
  Serious: Yes (Hospitalization)
  Sender: FDA-Public Use
  Company Number: None

PATIENT
  Age: 55 Year
  Sex: Female
  Weight: 100 kg

DRUGS (1)
  1. PROCHLORPERAZINE [Suspect]
     Indication: NAUSEA
     Dosage: 10 MG ONE TIME IV
     Route: 042
     Dates: start: 20091214, end: 20091214

REACTIONS (6)
  - AKATHISIA [None]
  - DYSPNOEA [None]
  - FEELING HOT [None]
  - TACHYCARDIA [None]
  - TREMOR [None]
  - URINARY INCONTINENCE [None]
